FAERS Safety Report 24187036 (Version 1)
Quarter: 2024Q3

REPORT INFORMATION
  Report Type: Spontaneous
  Country: US (occurrence: US)
  Receive Date: 20240808
  Receipt Date: 20240808
  Transmission Date: 20241017
  Serious: No
  Sender: LUPIN
  Company Number: US-LUPIN PHARMACEUTICALS INC.-2024-05056

PATIENT

DRUGS (2)
  1. SERTRALINE HYDROCHLORIDE [Suspect]
     Active Substance: SERTRALINE HYDROCHLORIDE
     Indication: Depression
     Dosage: 200 MG
     Route: 065
  2. SERTRALINE HYDROCHLORIDE [Suspect]
     Active Substance: SERTRALINE HYDROCHLORIDE
     Dosage: 100 MG
     Route: 065

REACTIONS (9)
  - Emotional distress [Recovering/Resolving]
  - Asthenia [Recovering/Resolving]
  - Apathy [Recovering/Resolving]
  - Crying [Recovering/Resolving]
  - Anger [Recovering/Resolving]
  - Abnormal behaviour [Recovering/Resolving]
  - Drug ineffective [Unknown]
  - Product formulation issue [Unknown]
  - Product substitution issue [Unknown]
